FAERS Safety Report 10106462 (Version 2)
Quarter: 2014Q2

REPORT INFORMATION
  Report Type: Spontaneous
  Country: CA (occurrence: CA)
  Receive Date: 20140424
  Receipt Date: 20140424
  Transmission Date: 20141212
  Serious: Yes (Other)
  Sender: FDA-Public Use
  Company Number: CA-ABBVIE-13P-028-1056885-00

PATIENT
  Sex: Female

DRUGS (2)
  1. HUMIRA [Suspect]
     Indication: CROHN^S DISEASE
     Route: 058
     Dates: start: 20070625
  2. ACLASTA [Suspect]
     Indication: OSTEOPENIA
     Route: 042
     Dates: start: 2011

REACTIONS (8)
  - Chills [Unknown]
  - Diarrhoea haemorrhagic [Unknown]
  - Nausea [Unknown]
  - Nephrolithiasis [Unknown]
  - Pyrexia [Unknown]
  - Thyroid neoplasm [Unknown]
  - Thyroid neoplasm [Unknown]
  - Vomiting [Unknown]
